FAERS Safety Report 10409283 (Version 2)
Quarter: 2014Q3

REPORT INFORMATION
  Report Type: Report from Study
  Country: JP (occurrence: JP)
  Receive Date: 20140826
  Receipt Date: 20140826
  Transmission Date: 20150326
  Serious: Yes (Death, Disabling)
  Sender: FDA-Public Use
  Company Number: JP-SA-THYM-1004014

PATIENT
  Age: 10 Year
  Sex: Female
  Weight: 15 kg

DRUGS (5)
  1. TACROLIMUS. [Suspect]
     Active Substance: TACROLIMUS
     Indication: IMMUNOSUPPRESSANT DRUG THERAPY
     Dosage: UNK
     Route: 065
     Dates: start: 20111115, end: 20120208
  2. BASILIXIMAB [Concomitant]
     Active Substance: BASILIXIMAB
     Indication: IMMUNOSUPPRESSION
  3. METHYLPREDNISOLONE [Suspect]
     Active Substance: METHYLPREDNISOLONE
     Indication: IMMUNOSUPPRESSANT DRUG THERAPY
     Dosage: 75-150 MG, UNK
     Route: 065
     Dates: start: 20111204, end: 20111212
  4. THYMOGLOBULINE [Suspect]
     Active Substance: LAPINE T-LYMPHOCYTE IMMUNE GLOBULIN
     Indication: INTESTINE TRANSPLANT REJECTION
     Dosage: 1.8 UNK, UNK
     Route: 065
     Dates: start: 20111208, end: 20111214
  5. METHYLPREDNISOLONE [Suspect]
     Active Substance: METHYLPREDNISOLONE
     Indication: IMMUNOSUPPRESSANT DRUG THERAPY
     Dosage: UNK
     Route: 065
     Dates: start: 20111116

REACTIONS (3)
  - Cerebral haemorrhage [Fatal]
  - Renal failure acute [Not Recovered/Not Resolved]
  - Brain abscess [Fatal]

NARRATIVE: CASE EVENT DATE: 20111214
